FAERS Safety Report 14282353 (Version 1)
Quarter: 2017Q4

REPORT INFORMATION
  Report Type: Spontaneous
  Country: US (occurrence: US)
  Receive Date: 20171213
  Receipt Date: 20171213
  Transmission Date: 20180321
  Serious: No
  Sender: FDA-Public Use
  Company Number: US-TEVA-2017-US-826527

PATIENT
  Sex: Female

DRUGS (3)
  1. DOCETAXEL. [Suspect]
     Active Substance: DOCETAXEL
     Dates: start: 20150924, end: 20151112
  2. DOCEFREZ [Suspect]
     Active Substance: DOCETAXEL ANHYDROUS
     Dates: start: 20150924, end: 20151112
  3. TAXOTERE [Suspect]
     Active Substance: DOCETAXEL
     Dates: start: 20150924, end: 20151112

REACTIONS (1)
  - Alopecia [Unknown]
